FAERS Safety Report 5795651-6 (Version None)
Quarter: 2008Q2

REPORT INFORMATION
  Report Type: 
  Country: None (occurrence: None)
  Receive Date: 20080630
  Receipt Date: 20080620
  Transmission Date: 20081010
  Serious: Yes (Death)
  Sender: FDA-Public Use
  Company Number: US-PFIZER INC-2008052642

PATIENT
  Sex: Female

DRUGS (2)
  1. CADUET [Suspect]
     Dosage: TEXT:10MG/10MG
  2. ZOLOFT [Suspect]
     Dosage: DAILY DOSE:50MG

REACTIONS (1)
  - DEATH [None]
